FAERS Safety Report 7820086-1 (Version None)
Quarter: 2011Q4

REPORT INFORMATION
  Report Type: 
  Country: None (occurrence: None)
  Receive Date: 20111018
  Receipt Date: 20111011
  Transmission Date: 20120403
  Serious: Yes (Hospitalization, Other)
  Sender: FDA-Public Use
  Company Number: US-PFIZER INC-2011247733

PATIENT
  Sex: Female

DRUGS (2)
  1. PROVERA [Suspect]
     Dosage: UNK
  2. EFFEXOR XR [Suspect]
     Dosage: 150 MG PER DAY

REACTIONS (1)
  - SUICIDE ATTEMPT [None]
